FAERS Safety Report 14826758 (Version 1)
Quarter: 2018Q2

REPORT INFORMATION
  Report Type: Spontaneous
  Country: RO (occurrence: RO)
  Receive Date: 20180430
  Receipt Date: 20180430
  Transmission Date: 20180711
  Serious: Yes (Other)
  Sender: FDA-Public Use
  Company Number: RO-BAYER-2018-078960

PATIENT
  Age: 74 Year
  Sex: Male

DRUGS (2)
  1. ADEMPAS [Suspect]
     Active Substance: RIOCIGUAT
     Indication: PULMONARY HYPERTENSION
     Dosage: 1 MG, TID FOR TWO WEEKS
     Route: 048
     Dates: start: 201606, end: 201606
  2. ADEMPAS [Suspect]
     Active Substance: RIOCIGUAT
     Indication: PULMONARY HYPERTENSION
     Dosage: 1.5 MG, TID
     Route: 048
     Dates: start: 201606, end: 2016

REACTIONS (1)
  - Dyspnoea paroxysmal nocturnal [Recovering/Resolving]

NARRATIVE: CASE EVENT DATE: 201606
